FAERS Safety Report 23867856 (Version 2)
Quarter: 2024Q2

REPORT INFORMATION
  Report Type: Spontaneous
  Country: IT (occurrence: IT)
  Receive Date: 20240517
  Receipt Date: 20240523
  Transmission Date: 20240716
  Serious: Yes (Hospitalization, Other)
  Sender: FDA-Public Use
  Company Number: None

PATIENT
  Age: 21 Year
  Sex: Female

DRUGS (2)
  1. ABILIFY [Suspect]
     Active Substance: ARIPIPRAZOLE
     Indication: Product used for unknown indication
     Dosage: 210 MG (14 TABLETS OF 15 MG TAKEN FOR SELF-HARM PURPOSES)
     Route: 048
  2. FLURAZEPAM MONOHYDROCHLORIDE [Suspect]
     Active Substance: FLURAZEPAM MONOHYDROCHLORIDE
     Indication: Product used for unknown indication
     Dosage: 870 MG (29 TABLETS OF 30 MG TAKEN FOR SELF-HARM PURPOSES)
     Route: 048

REACTIONS (3)
  - Intentional self-injury [Unknown]
  - Somnolence [Recovered/Resolved]
  - Drug abuse [Unknown]

NARRATIVE: CASE EVENT DATE: 20240503
